FAERS Safety Report 7285132-5 (Version None)
Quarter: 2011Q1

REPORT INFORMATION
  Report Type: 
  Country: None (occurrence: None)
  Receive Date: 20110210
  Receipt Date: 20110201
  Transmission Date: 20110831
  Serious: Yes (Hospitalization)
  Sender: FDA-Public Use
  Company Number: PHHO2010BE12459

PATIENT
  Sex: Male
  Weight: 94.3 kg

DRUGS (19)
  1. VALCYTE [Concomitant]
  2. ALFACALCIDOL [Concomitant]
  3. CALCIUM CARBONATE [Concomitant]
  4. MOTILIUM [Concomitant]
  5. ARANESP [Concomitant]
  6. CELLCEPT [Suspect]
     Dosage: 2X1000 MG
     Route: 048
     Dates: start: 20100621
  7. PROGRAF [Concomitant]
  8. INDAPAMIDE [Concomitant]
  9. NO TREATMENT RECEIVED [Suspect]
     Indication: RENAL TRANSPLANT
     Dosage: NO TREATMENT
  10. BACTRIM DS [Concomitant]
  11. BURINEX [Concomitant]
  12. MAGNUM [Concomitant]
  13. SODIUM BICARBONATE [Concomitant]
  14. FRAXODI [Concomitant]
  15. WARFARIN SODIUM [Concomitant]
  16. NEORAL [Suspect]
     Indication: RENAL TRANSPLANT
  17. MEDROL [Suspect]
     Dosage: 4 MG, TID
     Route: 048
     Dates: start: 20100709
  18. D-CURE [Concomitant]
  19. PANTOPRAZOLE [Concomitant]

REACTIONS (4)
  - HYPONATRAEMIA [None]
  - HEADACHE [None]
  - NERVOUS SYSTEM DISORDER [None]
  - BLOOD CREATININE INCREASED [None]
